FAERS Safety Report 7456573-8 (Version None)
Quarter: 2011Q2

REPORT INFORMATION
  Report Type: 
  Country: None (occurrence: None)
  Receive Date: 20110503
  Receipt Date: 20110426
  Transmission Date: 20111010
  Serious: Yes (Other)
  Sender: FDA-Public Use
  Company Number: US-AMGEN-USASP2011020132

PATIENT
  Age: 76 Year
  Sex: Female

DRUGS (1)
  1. NPLATE [Suspect]
     Indication: IDIOPATHIC THROMBOCYTOPENIC PURPURA
     Dates: start: 20101101, end: 20110110

REACTIONS (3)
  - PLATELET COUNT ABNORMAL [None]
  - THROMBOCYTOPENIA [None]
  - ABDOMINAL PAIN [None]
